FAERS Safety Report 7777678-8 (Version None)
Quarter: 2011Q3

REPORT INFORMATION
  Report Type: 
  Country: None (occurrence: None)
  Receive Date: 20110922
  Receipt Date: 20110912
  Transmission Date: 20111222
  Serious: Yes (Other)
  Sender: FDA-Public Use
  Company Number: ACO_26606_2011

PATIENT
  Age: 72 Year
  Sex: Female

DRUGS (10)
  1. VITAMIN B6 [Concomitant]
  2. VITAMIN B12 /00056201/ (CYANOCOBALMIN) [Concomitant]
  3. FLAXSEED OIL (LINUM USITATISSIMUM SEED OIL) [Concomitant]
  4. DOCUSATE SODIUM (DOCUSATE SODIUM) [Concomitant]
  5. AMPYRA [Suspect]
     Indication: GAIT DISTURBANCE
     Dosage: 10 MG, BID; 10 MG, BID; 10 MG, BID, ORAL
     Route: 048
     Dates: start: 20110101
  6. AMPYRA [Suspect]
     Indication: GAIT DISTURBANCE
     Dosage: 10 MG, BID; 10 MG, BID; 10 MG, BID, ORAL
     Route: 048
     Dates: start: 20110301, end: 20110501
  7. AMPYRA [Suspect]
     Indication: GAIT DISTURBANCE
     Dosage: 10 MG, BID; 10 MG, BID; 10 MG, BID, ORAL
     Route: 048
     Dates: start: 20110601, end: 20110601
  8. AVONEX [Concomitant]
  9. ASPIRIN [Concomitant]
  10. IBUPROFEN [Concomitant]

REACTIONS (2)
  - ALOPECIA [None]
  - KNEE ARTHROPLASTY [None]
